FAERS Safety Report 10254699 (Version 1)
Quarter: 2014Q2

REPORT INFORMATION
  Report Type: Spontaneous
  Country: US (occurrence: None)
  Receive Date: 20140620
  Receipt Date: 20140620
  Transmission Date: 20141212
  Serious: Yes (Hospitalization)
  Sender: FDA-Public Use
  Company Number: None

PATIENT
  Age: 64 Year
  Sex: Female
  Weight: 55 kg

DRUGS (7)
  1. ABACAVIR [Suspect]
     Indication: HIV INFECTION
     Dosage: ONE TABLET  BID ORAL
     Route: 048
     Dates: end: 20140617
  2. HALDOL [Concomitant]
  3. CONGENTIN [Concomitant]
  4. LAMIVUDINE [Concomitant]
  5. RALTEGRAVIR [Concomitant]
  6. MAGNESIUM OXIDE [Concomitant]
  7. ASPIRIN 81MG [Concomitant]

REACTIONS (9)
  - Rash pruritic [None]
  - Chills [None]
  - Blood potassium increased [None]
  - Body temperature increased [None]
  - Rash maculo-papular [None]
  - White blood cell count increased [None]
  - Blood lactic acid increased [None]
  - Transaminases increased [None]
  - Renal impairment [None]
